FAERS Safety Report 7901300-0 (Version None)
Quarter: 2011Q4

REPORT INFORMATION
  Report Type: 
  Country: None (occurrence: None)
  Receive Date: 20111108
  Receipt Date: 20111104
  Transmission Date: 20120403
  Serious: Yes (Death, Hospitalization, Other)
  Sender: FDA-Public Use
  Company Number: PHHY2011DE63607

PATIENT
  Sex: Male
  Weight: 60 kg

DRUGS (10)
  1. AVASTIN [Concomitant]
  2. CIPRO [Concomitant]
  3. ZOMETA [Suspect]
     Dosage: 4 MG/ 5 MG
     Route: 042
     Dates: start: 20110630
  4. MORFINE [Concomitant]
  5. KEVATRIL [Concomitant]
  6. FENTANYL [Concomitant]
     Indication: CANCER PAIN
     Dosage: 200 UG, UNK
  7. ZOMETA [Suspect]
     Indication: METASTASES TO BONE
     Dosage: 4 MG/ 5 MG
     Route: 042
     Dates: start: 20110401
  8. FOLFOX-4 [Concomitant]
  9. FOLFIRI [Concomitant]
  10. METOCLOPRAMIDE [Concomitant]

REACTIONS (7)
  - PSYCHOMOTOR HYPERACTIVITY [None]
  - MENTAL DISORDER [None]
  - NEOPLASM PROGRESSION [None]
  - NEOPLASM MALIGNANT [None]
  - CONFUSIONAL STATE [None]
  - PAIN [None]
  - INSOMNIA [None]
